FAERS Safety Report 6387928-0 (Version None)
Quarter: 2009Q4

REPORT INFORMATION
  Report Type: 
  Country: None (occurrence: None)
  Receive Date: 20091005
  Receipt Date: 20090923
  Transmission Date: 20100525
  Serious: Yes (Disabling, Other)
  Sender: FDA-Public Use
  Company Number: ES-CELGENEUS-144-50794-09090460

PATIENT
  Sex: Female
  Weight: 70 kg

DRUGS (3)
  1. VIDAZA [Suspect]
     Route: 058
     Dates: start: 20090805
  2. ACREL [Concomitant]
     Indication: OSTEOPOROSIS
     Route: 065
     Dates: start: 20000115
  3. CALCIUM [Concomitant]
     Indication: OSTEOPOROSIS
     Route: 065
     Dates: start: 20000115

REACTIONS (1)
  - POLYARTHRITIS [None]
